FAERS Safety Report 6306706-1 (Version None)
Quarter: 2009Q3

REPORT INFORMATION
  Report Type: 
  Country: None (occurrence: None)
  Receive Date: 20090812
  Receipt Date: 20090514
  Transmission Date: 20100115
  Serious: No
  Sender: FDA-Public Use
  Company Number: A0784333A

PATIENT
  Age: 61 Year
  Sex: Female

DRUGS (5)
  1. VERAMYST [Suspect]
     Indication: MULTIPLE ALLERGIES
     Dosage: 2SPR PER DAY
     Route: 045
     Dates: start: 20090424
  2. CLONAZEPAM [Concomitant]
  3. WELLBUTRIN [Concomitant]
  4. PAXIL [Concomitant]
  5. THYROID MEDICATION [Concomitant]
     Dates: start: 20090512

REACTIONS (4)
  - DISTURBANCE IN ATTENTION [None]
  - HEADACHE [None]
  - SINUS HEADACHE [None]
  - UPPER RESPIRATORY TRACT INFECTION [None]
